FAERS Safety Report 15019725 (Version 1)
Quarter: 2018Q2

REPORT INFORMATION
  Report Type: Other
  Country: US (occurrence: US)
  Receive Date: 20180618
  Receipt Date: 20180618
  Transmission Date: 20180711
  Serious: Yes (Other)
  Sender: FDA-Public Use
  Company Number: US-DENTSPLY-2018SCDP000199

PATIENT

DRUGS (1)
  1. LIDOCAINE AND PRILOCAINE [Suspect]
     Active Substance: LIDOCAINE\PRILOCAINE
     Indication: ANAESTHESIA
     Dosage: 2.5% LIDOCAINE AND 2.5% PRILOCAINE
     Route: 061

REACTIONS (2)
  - Toxicity to various agents [Unknown]
  - Dermatitis bullous [Unknown]
